FAERS Safety Report 9611700 (Version 2)
Quarter: 2014Q1

REPORT INFORMATION
  Report Type: Spontaneous
  Country: US (occurrence: US)
  Receive Date: 20131010
  Receipt Date: 20140312
  Transmission Date: 20141002
  Serious: No
  Sender: FDA-Public Use
  Company Number: US-PFIZER INC-2013287717

PATIENT
  Age: 58 Year
  Sex: Male

DRUGS (9)
  1. CELEBREX [Suspect]
     Dosage: UNK
  2. LEVAQUIN [Suspect]
     Dosage: UNK
  3. ASA [Suspect]
     Dosage: UNK
  4. ULTRAM [Suspect]
     Dosage: UNK
  5. DARVON [Suspect]
     Dosage: UNK
  6. ALEVE [Suspect]
     Dosage: UNK
  7. DEPAKOTE [Suspect]
     Dosage: UNK
  8. DARVOCET [Suspect]
     Dosage: UNK
  9. PENICILLIN [Suspect]
     Dosage: UNK

REACTIONS (1)
  - Drug hypersensitivity [Unknown]
